FAERS Safety Report 7376126-X (Version None)
Quarter: 2011Q1

REPORT INFORMATION
  Report Type: 
  Country: None (occurrence: None)
  Receive Date: 20110325
  Receipt Date: 20110314
  Transmission Date: 20110831
  Serious: Yes (Other)
  Sender: FDA-Public Use
  Company Number: PHHY2011JP21514

PATIENT
  Age: 55 Year
  Sex: Male

DRUGS (7)
  1. RITUXIMAB [Suspect]
     Indication: IMMUNOSUPPRESSION
  2. PREDNISOLONE [Suspect]
     Indication: IMMUNOSUPPRESSION
  3. RANIMUSTINE [Suspect]
     Indication: IMMUNOSUPPRESSION
  4. DOXORUBICIN [Suspect]
     Indication: IMMUNOSUPPRESSION
  5. CYCLOPHOSPHAMIDE [Suspect]
     Indication: IMMUNOSUPPRESSION
  6. VINCRISTINE [Suspect]
     Indication: IMMUNOSUPPRESSION
  7. ETOPOSIDE [Suspect]
     Indication: IMMUNOSUPPRESSION
     Route: 042

REACTIONS (1)
  - HEPATITIS B [None]
